FAERS Safety Report 6533990-1 (Version None)
Quarter: 2010Q1

REPORT INFORMATION
  Report Type: 
  Country: None (occurrence: None)
  Receive Date: 20100112
  Receipt Date: 20100106
  Transmission Date: 20100710
  Serious: Yes (Hospitalization)
  Sender: FDA-Public Use
  Company Number: US-ELI_LILLY_AND_COMPANY-US201001001208

PATIENT
  Sex: Male

DRUGS (2)
  1. HUMALOG [Suspect]
     Dosage: UNK, AS NEEDED
     Dates: start: 20070601
  2. LANTUS [Concomitant]
     Dosage: 20 U, EACH EVENING
     Dates: start: 20090701

REACTIONS (8)
  - BLOOD GLUCOSE INCREASED [None]
  - DRUG INEFFECTIVE [None]
  - FOOD POISONING [None]
  - MENINGITIS VIRAL [None]
  - NEUROPATHY PERIPHERAL [None]
  - PARAESTHESIA [None]
  - PROSTATIC OPERATION [None]
  - WEIGHT INCREASED [None]
